FAERS Safety Report 8337131-X (Version None)
Quarter: 2012Q2

REPORT INFORMATION
  Report Type: 
  Country: None (occurrence: None)
  Receive Date: 20120504
  Receipt Date: 20120430
  Transmission Date: 20120825
  Serious: Yes (Death)
  Sender: FDA-Public Use
  Company Number: FR-B.I. PHARMACEUTICALS,INC./RIDGEFIELD-2012-FF-00303FF

PATIENT
  Sex: Female
  Weight: 92 kg

DRUGS (3)
  1. AUGMENTIN [Suspect]
     Indication: PYREXIA
     Route: 048
     Dates: start: 20120207
  2. PRADAXA [Suspect]
     Indication: KNEE ARTHROPLASTY
     Dosage: 220 MG
     Route: 048
     Dates: start: 20120206, end: 20120210
  3. XARELTO [Suspect]
     Route: 048
     Dates: start: 20120130, end: 20120206

REACTIONS (2)
  - THROMBOCYTOPENIA [None]
  - HAEMORRHAGIC STROKE [None]
